FAERS Safety Report 25009765 (Version 1)
Quarter: 2025Q1

REPORT INFORMATION
  Report Type: Spontaneous
  Country: US (occurrence: US)
  Receive Date: 20250225
  Receipt Date: 20250225
  Transmission Date: 20250408
  Serious: Yes (Hospitalization, Other)
  Sender: TORRENT PHARMA INC.
  Company Number: US-TORRENT-00014227

PATIENT
  Age: 40 Year
  Sex: Male

DRUGS (2)
  1. LAMOTRIGINE [Suspect]
     Active Substance: LAMOTRIGINE
     Indication: Bipolar disorder
     Dosage: 300MG TWICE A DAY, STOPPED LAMOTRIGINE IN MID AUG/2024 TO EARLY SEP/2024.
     Route: 065
     Dates: start: 202403, end: 2024
  2. GABAPENTIN [Concomitant]
     Active Substance: GABAPENTIN
     Indication: Anxiety
     Dosage: 400MG 4 TIMES A DAY FOR 15 YEARS
     Route: 065

REACTIONS (2)
  - Drug withdrawal convulsions [Unknown]
  - Therapy cessation [Unknown]

NARRATIVE: CASE EVENT DATE: 20240920
